FAERS Safety Report 9855869 (Version 1)
Quarter: 2013Q4

REPORT INFORMATION
  Report Type: Spontaneous
  Country: US (occurrence: None)
  Receive Date: 20131226
  Receipt Date: 20131226
  Transmission Date: 20140711
  Serious: No
  Sender: FDA-Public Use
  Company Number: PHEH2013US018257

PATIENT
  Age: 35 Year
  Sex: Female

DRUGS (8)
  1. GILENYA (FINGOLIMOD) CAPSULE [Suspect]
  2. VITAMIN D3 (COLECALCIFEROL) [Concomitant]
  3. BACLOFEN (BACLOFEN) [Concomitant]
  4. LEXAPRO (ESCITALOPRAM OXALATE) [Concomitant]
  5. SUBOXONE (BUPRENORPHINE HYDROCHLORIDE, NALOXONE HYDROCHLORIDE) [Concomitant]
  6. ADDERALL (AMFETAMINE ASPARTATE, AMFETAMINE SULFATE, DEXAMFETAMINE SACCHARATE, DEXAMFETAMINE SULFATE) [Concomitant]
  7. VITAMIN B12 (CYANOCOBALAMIN) [Concomitant]
  8. NUEDEXTA (DEXTROMETHORPHEN HYDROBROMIDE, QUINIDINE SULFATE) [Concomitant]

REACTIONS (1)
  - Drug interaction [None]
